FAERS Safety Report 5235418-0 (Version None)
Quarter: 2007Q1

REPORT INFORMATION
  Report Type: 
  Country: None (occurrence: None)
  Receive Date: 20070209
  Receipt Date: 20070209
  Transmission Date: 20070707
  Serious: No
  Sender: FDA-Public Use
  Company Number: None

PATIENT

DRUGS (4)
  1. HEPARIN SODIUM INJECTION [Suspect]
     Dosage: INJECTABLE  SYRINGE, PREFILLED
  2. PROMETHAZINE HCL [Suspect]
     Dosage: INJECTABLE  SYRINGE, PRE-FILLED
  3. KETOROLAC TROMETHAMINE [Suspect]
     Dosage: INJECTABLE  SYRINGE, PRE-FILLED
  4. PHENYTOIN SODIUM [Suspect]
     Dosage: INJECTABLE  SYRINGE, PRE-FILLED 2 ML

REACTIONS (1)
  - MEDICATION ERROR [None]
